FAERS Safety Report 17916059 (Version 3)
Quarter: 2020Q2

REPORT INFORMATION
  Report Type: Report from Study
  Country: IL (occurrence: IL)
  Receive Date: 20200619
  Receipt Date: 20200626
  Transmission Date: 20200714
  Serious: Yes (Hospitalization)
  Sender: FDA-Public Use
  Company Number: IL-EISAI MEDICAL RESEARCH-EC-2020-076171

PATIENT
  Age: 64 Year
  Sex: Female
  Weight: 75 kg

DRUGS (14)
  1. FOSAVANCE [Concomitant]
     Active Substance: ALENDRONATE SODIUM\CHOLECALCIFEROL
     Dates: start: 20200124
  2. ELTROXIN [Concomitant]
     Active Substance: LEVOTHYROXINE
     Dates: start: 20200513
  3. PREDNISONE. [Concomitant]
     Active Substance: PREDNISONE
     Dates: start: 20190926
  4. TOUJEO [Concomitant]
     Active Substance: INSULIN GLARGINE
     Dates: start: 201908
  5. LIPITOR [Concomitant]
     Active Substance: ATORVASTATIN CALCIUM
     Dates: start: 20200329
  6. LENVATINIB [Suspect]
     Active Substance: LENVATINIB
     Indication: NON-SMALL CELL LUNG CANCER METASTATIC
     Dosage: FLUCTUATED DOSE, START DOSE WAS 24 MG
     Route: 048
     Dates: start: 20191023, end: 20200526
  7. VIEPAX [Concomitant]
     Active Substance: VENLAFAXINE HYDROCHLORIDE
     Dates: start: 201906
  8. JANUET [Concomitant]
     Active Substance: METFORMIN HYDROCHLORIDE\SITAGLIPTIN PHOSPHATE
     Dates: start: 200701
  9. NEXIUM [Concomitant]
     Active Substance: ESOMEPRAZOLE MAGNESIUM
     Dates: start: 201908
  10. OPTALGIN [Concomitant]
     Active Substance: METAMIZOLE
     Dates: start: 20191001
  11. LENVATINIB [Suspect]
     Active Substance: LENVATINIB
     Route: 048
     Dates: start: 20200527
  12. CARDILOC [Concomitant]
     Active Substance: BISOPROLOL FUMARATE
     Dates: start: 20191124
  13. CODEINE [Concomitant]
     Active Substance: CODEINE
     Dates: start: 20191226
  14. OXYGEN. [Concomitant]
     Active Substance: OXYGEN
     Dates: start: 20190805

REACTIONS (1)
  - Cerebrovascular accident [Not Recovered/Not Resolved]

NARRATIVE: CASE EVENT DATE: 20200609
